FAERS Safety Report 5528115-5 (Version None)
Quarter: 2007Q4

REPORT INFORMATION
  Report Type: 
  Country: None (occurrence: None)
  Receive Date: 20071126
  Receipt Date: 20071126
  Transmission Date: 20080405
  Serious: Yes (Hospitalization, Other)
  Sender: FDA-Public Use
  Company Number: None

PATIENT
  Age: 35 Year
  Sex: Female
  Weight: 108.8633 kg

DRUGS (1)
  1. MERIDIA [Suspect]
     Indication: OBESITY
     Dosage: 10 MG ONE PER DAY PO
     Route: 048
     Dates: start: 20070222, end: 20070421

REACTIONS (3)
  - ARRHYTHMIA [None]
  - NO THERAPEUTIC RESPONSE [None]
  - PALPITATIONS [None]
